FAERS Safety Report 7606701-6 (Version None)
Quarter: 2011Q3

REPORT INFORMATION
  Report Type: 
  Country: None (occurrence: None)
  Receive Date: 20110713
  Receipt Date: 20110708
  Transmission Date: 20111222
  Serious: Yes (Life-Threatening, Hospitalization)
  Sender: FDA-Public Use
  Company Number: BR-ROCHE-786884

PATIENT
  Age: 27 Year
  Sex: Female

DRUGS (2)
  1. LANTUS [Concomitant]
     Dosage: DOSE: 100 UI/ML
  2. ACTEMRA [Suspect]
     Route: 065
     Dates: start: 20110421, end: 20110521

REACTIONS (9)
  - HYPERCALCAEMIA [None]
  - PNEUMOCYSTIS JIROVECI INFECTION [None]
  - PANCYTOPENIA [None]
  - VOMITING [None]
  - PNEUMONIA [None]
  - NAUSEA [None]
  - DIARRHOEA [None]
  - APLASTIC ANAEMIA [None]
  - HEPATIC ENZYME INCREASED [None]
